FAERS Safety Report 10305576 (Version 1)
Quarter: 2014Q3

REPORT INFORMATION
  Report Type: Spontaneous
  Country: US (occurrence: None)
  Receive Date: 20140711
  Receipt Date: 20140711
  Transmission Date: 20150326
  Serious: Yes (Other)
  Sender: FDA-Public Use
  Company Number: AUR-APL-2014-07204

PATIENT
  Age: 61 Year
  Sex: Male
  Weight: 83.9 kg

DRUGS (5)
  1. AMLODIPINE [Suspect]
     Active Substance: AMLODIPINE BESYLATE
     Indication: HYPERTENSION
     Dosage: UNK, UNKNOWN
     Dates: start: 201201
  2. LYRICA [Suspect]
     Active Substance: PREGABALIN
     Indication: NERVE COMPRESSION
     Dosage: 75 MG, ONCE A DAY, ORAL
     Route: 048
     Dates: start: 2007, end: 2012
  3. IBUPROFEN (IBUPROFEN) [Concomitant]
     Active Substance: IBUPROFEN
  4. METOPROLOL 50MG TABLET [Suspect]
     Active Substance: METOPROLOL
     Indication: HYPERTENSION
     Dosage: 50 MG, ONCE A DAY, UNKNOWN
     Dates: end: 2012
  5. LYRICA [Suspect]
     Active Substance: PREGABALIN
     Indication: INTERVERTEBRAL DISC DISORDER
     Dosage: 75 MG, ONCE A DAY, ORAL
     Route: 048
     Dates: start: 2007, end: 2012

REACTIONS (8)
  - Presyncope [None]
  - Feeling abnormal [None]
  - Drug ineffective [None]
  - Overdose [None]
  - Nerve compression [None]
  - Renal disorder [None]
  - Intentional product misuse [None]
  - Condition aggravated [None]

NARRATIVE: CASE EVENT DATE: 201202
